FAERS Safety Report 17019680 (Version 1)
Quarter: 2019Q4

REPORT INFORMATION
  Report Type: Spontaneous
  Country: ES (occurrence: ES)
  Receive Date: 20191112
  Receipt Date: 20191112
  Transmission Date: 20200122
  Serious: Yes (Other)
  Sender: FDA-Public Use
  Company Number: ES-AUROBINDO-AUR-APL-2019-071908

PATIENT
  Age: 82 Year
  Sex: Female
  Weight: 80 kg

DRUGS (6)
  1. METAMIZOLE MAGNESIUM [Suspect]
     Active Substance: METAMIZOLE MAGNESIUM
     Dosage: DOSE REDUCED
     Route: 065
  2. PARACETAMOL [Suspect]
     Active Substance: ACETAMINOPHEN
     Dosage: DOSE REDUCED
     Route: 065
  3. METAMIZOLE MAGNESIUM [Suspect]
     Active Substance: METAMIZOLE MAGNESIUM
     Indication: ARTHRALGIA
     Dosage: 1 DOSAGE FORM, 3 TIMES A DAY
     Route: 048
  4. INSULIN GLARGINE [Suspect]
     Active Substance: INSULIN GLARGINE
     Indication: TYPE 2 DIABETES MELLITUS
     Dosage: 36 INTERNATIONAL UNIT
     Route: 058
     Dates: start: 2019
  5. PARACETAMOL [Suspect]
     Active Substance: ACETAMINOPHEN
     Indication: ARTHRALGIA
     Dosage: 1 DOSAGE FORM, 3 TIMES A DAY
     Route: 048
  6. INSULIN RAPID [Concomitant]
     Active Substance: INSULIN NOS
     Indication: TYPE 2 DIABETES MELLITUS
     Dosage: ACCORDING TO GLYCAEMIAS
     Route: 058

REACTIONS (5)
  - Nasopharyngitis [Recovering/Resolving]
  - Asphyxia [Recovering/Resolving]
  - Dose calculation error [Unknown]
  - Asthenia [Unknown]
  - Pain [Unknown]
